FAERS Safety Report 12768648 (Version 1)
Quarter: 2016Q3

REPORT INFORMATION
  Report Type: Spontaneous
  Country: US (occurrence: US)
  Receive Date: 20160921
  Receipt Date: 20160921
  Transmission Date: 20161109
  Serious: No
  Sender: FDA-Public Use
  Company Number: US-JAZZ-2016-US-010124

PATIENT
  Sex: Female

DRUGS (70)
  1. XYREM [Suspect]
     Active Substance: SODIUM OXYBATE
     Dosage: DOSE ADJUSTMENTS
     Route: 048
     Dates: start: 200512, end: 201208
  2. LEFLUNOMIDE. [Concomitant]
     Active Substance: LEFLUNOMIDE
  3. NALTREXONE [Concomitant]
     Active Substance: NALTREXONE
  4. ROPINIROLE HCL [Concomitant]
     Active Substance: ROPINIROLE HYDROCHLORIDE
  5. FOLIC ACID. [Concomitant]
     Active Substance: FOLIC ACID
  6. POLY-IRON [Concomitant]
     Active Substance: IRON
  7. SOMA [Concomitant]
     Active Substance: CARISOPRODOL
  8. ARMOUR THYROID [Concomitant]
     Active Substance: THYROID, PORCINE
  9. ACYCLOVIR. [Concomitant]
     Active Substance: ACYCLOVIR
  10. FLUDROCORTISONE [Concomitant]
     Active Substance: FLUDROCORTISONE
  11. VITAMIN B-COMPLEX [Concomitant]
     Active Substance: DEXPANTHENOL\NIACINAMIDE\PYRIDOXINE HYDROCHLORIDE\RIBOFLAVIN 5^-PHOSPHATE SODIUM\THIAMINE HYDROCHLORIDE
  12. SINGULAIR [Concomitant]
     Active Substance: MONTELUKAST SODIUM
  13. MELOXICAM. [Concomitant]
     Active Substance: MELOXICAM
  14. PROVIGIL [Concomitant]
     Active Substance: MODAFINIL
  15. METHOTREXATE. [Suspect]
     Active Substance: METHOTREXATE
     Indication: PRODUCT USED FOR UNKNOWN INDICATION
  16. ASTELIN [Concomitant]
     Active Substance: AZELASTINE HYDROCHLORIDE
  17. ALPHA LIPOIC ACID [Concomitant]
     Active Substance: .ALPHA.-LIPOIC ACID
  18. BIOFLAVONOIDS [Concomitant]
     Active Substance: BIOFLAVONOIDS
  19. PREGNENOLONE [Concomitant]
     Active Substance: PREGNENOLONE
  20. CYCLOBENZAPRINE [Concomitant]
     Active Substance: CYCLOBENZAPRINE
  21. LEVETIRACETAM. [Concomitant]
     Active Substance: LEVETIRACETAM
  22. GABAPENTIN. [Concomitant]
     Active Substance: GABAPENTIN
  23. MAGNESIUM CARBONAT [Concomitant]
  24. ASPIRIN. [Concomitant]
     Active Substance: ASPIRIN
  25. BACLOFEN. [Concomitant]
     Active Substance: BACLOFEN
  26. EXELON [Concomitant]
     Active Substance: RIVASTIGMINE TARTRATE
  27. PERIOGARD [Concomitant]
     Active Substance: CHLORHEXIDINE GLUCONATE
  28. LIOTHYRONINE SODIUM. [Concomitant]
     Active Substance: LIOTHYRONINE SODIUM
  29. BOTOX [Concomitant]
     Active Substance: ONABOTULINUMTOXINA
  30. FIORICET [Concomitant]
     Active Substance: ACETAMINOPHEN\BUTALBITAL\CAFFEINE
  31. CALCIUM CITRATE [Concomitant]
     Active Substance: CALCIUM CITRATE
  32. TRAMADOL HCL [Concomitant]
     Active Substance: TRAMADOL HYDROCHLORIDE
  33. RISEDRONATE SODIUM. [Concomitant]
     Active Substance: RISEDRONATE SODIUM
  34. PERCOCET [Concomitant]
     Active Substance: ACETAMINOPHEN\OXYCODONE HYDROCHLORIDE
  35. NEILMED SINUS RINSE [Concomitant]
     Active Substance: SODIUM BICARBONATE\SODIUM CHLORIDE
  36. CONTRAVE [Concomitant]
     Active Substance: BUPROPION HYDROCHLORIDE\NALTREXONE HYDROCHLORIDE
  37. BUPROPION HCL [Concomitant]
     Active Substance: BUPROPION HYDROCHLORIDE
  38. LYRICA [Concomitant]
     Active Substance: PREGABALIN
  39. N-ACETYL-L-CYSTEINE [Concomitant]
     Active Substance: ACETYLCYSTEINE
  40. AMANTADINE [Concomitant]
     Active Substance: AMANTADINE
  41. MAXALT [Concomitant]
     Active Substance: RIZATRIPTAN BENZOATE
  42. METHYLPHENIDATE. [Concomitant]
     Active Substance: METHYLPHENIDATE
  43. VITAMIN B12 [Concomitant]
     Active Substance: CYANOCOBALAMIN
  44. 5-HTP [Concomitant]
     Active Substance: OXITRIPTAN
  45. BETHANECHOL [Concomitant]
     Active Substance: BETHANECHOL
  46. METAMUCIL [Concomitant]
     Active Substance: PLANTAGO SEED
  47. PROBIOTIC ACIDOPHILUS [Concomitant]
     Active Substance: LACTOBACILLUS ACIDOPHILUS
  48. TOPAMAX [Concomitant]
     Active Substance: TOPIRAMATE
  49. FLONASE [Concomitant]
     Active Substance: FLUTICASONE PROPIONATE
  50. LEVOTHYROXINE. [Concomitant]
     Active Substance: LEVOTHYROXINE
  51. LITHIUM CARBONATE. [Concomitant]
     Active Substance: LITHIUM CARBONATE
  52. NEXIUM [Concomitant]
     Active Substance: ESOMEPRAZOLE MAGNESIUM
  53. LYSINE [Concomitant]
     Active Substance: LYSINE
  54. VITAMIN C [Concomitant]
     Active Substance: ASCORBIC ACID
  55. ZINC CHLORIDE [Concomitant]
     Active Substance: ZINC CHLORIDE
  56. PRAMIPEXOLE. [Concomitant]
     Active Substance: PRAMIPEXOLE
  57. XYREM [Suspect]
     Active Substance: SODIUM OXYBATE
     Indication: NARCOLEPSY
     Dosage: 3 G, BID
     Route: 048
     Dates: start: 200504, end: 200512
  58. XYREM [Suspect]
     Active Substance: SODIUM OXYBATE
     Dosage: 4.5 G, BID
     Route: 048
     Dates: start: 201208
  59. VITAMIN D [Concomitant]
     Active Substance: CHOLECALCIFEROL
  60. NUVIGIL [Concomitant]
     Active Substance: ARMODAFINIL
  61. VITAMIN B2 [Concomitant]
     Active Substance: RIBOFLAVIN
  62. SULFAZINE [Concomitant]
     Active Substance: SULFASALAZINE
  63. BENADRYL [Concomitant]
     Active Substance: DIPHENHYDRAMINE HYDROCHLORIDE
  64. ADDERALL [Concomitant]
     Active Substance: AMPHETAMINE ASPARTATE\AMPHETAMINE SULFATE\DEXTROAMPHETAMINE SACCHARATE\DEXTROAMPHETAMINE SULFATE
  65. CLONIDINE. [Concomitant]
     Active Substance: CLONIDINE
  66. HYDROXYCHLOROQUINE [Concomitant]
     Active Substance: HYDROXYCHLOROQUINE
  67. HYOSCYAMINE. [Concomitant]
     Active Substance: HYOSCYAMINE
  68. PANTOPRAZOLE SODIUM. [Concomitant]
     Active Substance: PANTOPRAZOLE SODIUM
  69. TIZANIDINE HCL [Concomitant]
     Active Substance: TIZANIDINE HYDROCHLORIDE
  70. IRON [Concomitant]
     Active Substance: IRON

REACTIONS (2)
  - Complex regional pain syndrome [Not Recovered/Not Resolved]
  - Drug hypersensitivity [Unknown]
